FAERS Safety Report 6179003-5 (Version None)
Quarter: 2009Q2

REPORT INFORMATION
  Report Type: 
  Country: None (occurrence: None)
  Receive Date: 20090505
  Receipt Date: 20090423
  Transmission Date: 20091009
  Serious: Yes (Other)
  Sender: FDA-Public Use
  Company Number: CA-JNJFOC-20090406269

PATIENT
  Age: 52 Year
  Sex: Female
  Weight: 80.6 kg

DRUGS (5)
  1. REMICADE [Suspect]
     Indication: FATIGUE
     Route: 042
  2. REMICADE [Suspect]
     Indication: ANKYLOSING SPONDYLITIS
     Route: 042
  3. ASACOL [Concomitant]
  4. BUSCOPAN [Concomitant]
  5. CODEINE SUL TAB [Concomitant]

REACTIONS (1)
  - LATENT TUBERCULOSIS [None]
